FAERS Safety Report 8524196-5 (Version None)
Quarter: 2012Q3

REPORT INFORMATION
  Report Type: 
  Country: None (occurrence: None)
  Receive Date: 20120720
  Receipt Date: 20120710
  Transmission Date: 20120928
  Serious: Yes (Other)
  Sender: FDA-Public Use
  Company Number: US-SANOFI-AVENTIS-2012SA049373

PATIENT
  Age: 65 Year
  Sex: Male

DRUGS (5)
  1. PLAVIX [Suspect]
     Indication: STENT PLACEMENT
     Route: 048
     Dates: start: 20100301, end: 20120622
  2. COREG [Concomitant]
  3. ZOCOR [Concomitant]
  4. PLAVIX [Suspect]
     Indication: CARDIAC ARREST
     Route: 048
     Dates: start: 20100301, end: 20120622
  5. ASPIRIN [Concomitant]

REACTIONS (3)
  - CHOLECYSTITIS [None]
  - DECREASED APPETITE [None]
  - CHEST PAIN [None]
